FAERS Safety Report 5615952-1 (Version None)
Quarter: 2008Q1

REPORT INFORMATION
  Report Type: 
  Country: None (occurrence: None)
  Receive Date: 20080206
  Receipt Date: 20080129
  Transmission Date: 20080703
  Serious: Yes (Hospitalization, Other)
  Sender: FDA-Public Use
  Company Number: PHFR2007GB03593

PATIENT
  Age: 67 Year
  Sex: Male

DRUGS (5)
  1. CLOZARIL [Suspect]
     Indication: SCHIZOPHRENIA
     Dosage: 100MG MANE, 150MG NOCTE
     Route: 048
     Dates: start: 20060829, end: 20071203
  2. SIMVASTATIN [Concomitant]
     Indication: HYPERCHOLESTEROLAEMIA
     Dosage: 20MG/DAY
     Route: 048
  3. GLIPIZIDE [Concomitant]
     Indication: DIABETES MELLITUS
     Dosage: 2.5MG/DAY
     Route: 048
  4. FERROUS SULFATE TAB [Concomitant]
     Dosage: 200MG/DAY
     Route: 048
  5. ASPIRIN [Concomitant]
     Dosage: 75MG/DAY
     Route: 048

REACTIONS (7)
  - CEREBROVASCULAR ACCIDENT [None]
  - COMPUTERISED TOMOGRAM ABNORMAL [None]
  - DIABETES MELLITUS [None]
  - FALL [None]
  - HEMIPARESIS [None]
  - HYPERCHOLESTEROLAEMIA [None]
  - VENTRICULAR EXTRASYSTOLES [None]
